FAERS Safety Report 9537837 (Version 2)
Quarter: 2013Q3

REPORT INFORMATION
  Report Type: Report from Study
  Country: CA (occurrence: CA)
  Receive Date: 20130919
  Receipt Date: 20130923
  Transmission Date: 20140515
  Serious: Yes (Death)
  Sender: FDA-Public Use
  Company Number: PHHY2013CA103953

PATIENT
  Age: 69 Year
  Sex: Female
  Weight: 55 kg

DRUGS (5)
  1. ACLASTA/ZOLEDRONATE [Suspect]
     Indication: OSTEOPOROSIS
     Dosage: 5 MG, ONCE A YEAR
     Route: 042
     Dates: start: 20090810
  2. FOSAMAX [Suspect]
     Indication: OSTEOPOROSIS
     Dosage: 70 MG, WEEKLY
     Route: 048
     Dates: start: 20100708
  3. CALCIUM [Concomitant]
     Indication: OSTEOPOROSIS
     Dosage: 100 MG, BID
     Dates: start: 200708
  4. DIDROCAL [Concomitant]
     Indication: OSTEOPOROSIS
     Dosage: 400 MG, DAILY
     Dates: start: 20080624, end: 20090717
  5. FOSAVANCE [Concomitant]
     Indication: OSTEOPOROSIS
     Dosage: UNK UKN, UNK

REACTIONS (3)
  - Death [Fatal]
  - Alanine aminotransferase increased [Unknown]
  - Blood glucose increased [Unknown]
